FAERS Safety Report 23260810 (Version 1)
Quarter: 2023Q4

REPORT INFORMATION
  Report Type: Report from Study
  Country: ES (occurrence: ES)
  Receive Date: 20231205
  Receipt Date: 20231205
  Transmission Date: 20240110
  Serious: Yes (Life-Threatening, Hospitalization, Other)
  Sender: FDA-Public Use
  Company Number: None

PATIENT

DRUGS (2)
  1. VALACYCLOVIR HYDROCHLORIDE [Suspect]
     Active Substance: VALACYCLOVIR HYDROCHLORIDE
     Indication: Herpes zoster
     Dosage: 3 G, QD
     Route: 048
     Dates: start: 20230804, end: 20230806
  2. LIDOCAINE [Concomitant]
     Active Substance: LIDOCAINE
     Indication: Herpes zoster
     Dosage: 700 MG, SINGLE
     Route: 062
     Dates: start: 20230804, end: 20230805

REACTIONS (1)
  - Encephalopathy [Recovered/Resolved]

NARRATIVE: CASE EVENT DATE: 20230805
